FAERS Safety Report 21403738 (Version 1)
Quarter: 2022Q4

REPORT INFORMATION
  Report Type: Report from Study
  Country: US (occurrence: None)
  Receive Date: 20221003
  Receipt Date: 20221003
  Transmission Date: 20230113
  Serious: Yes (Hospitalization)
  Sender: FDA-Public Use
  Company Number: US-ROCHE-3186225

PATIENT
  Age: 22 Year
  Sex: Male
  Weight: 53.3 kg

DRUGS (10)
  1. BALOXAVIR MARBOXIL [Suspect]
     Active Substance: BALOXAVIR MARBOXIL
     Indication: Product used for unknown indication
     Route: 048
  2. OSELTAMIVIR [Suspect]
     Active Substance: OSELTAMIVIR
     Indication: Product used for unknown indication
     Route: 065
  3. MEPRON (UNITED STATES) [Concomitant]
     Dosage: DOSE:  750 MG/5 ML
  4. BENZONATATE [Concomitant]
     Active Substance: BENZONATATE
  5. MARINOL [Concomitant]
     Active Substance: DRONABINOL
  6. DIFLUCAN [Concomitant]
     Active Substance: FLUCONAZOLE
     Route: 048
  7. FOLVITE [Concomitant]
     Active Substance: FOLIC ACID
     Route: 048
  8. NAMENDA [Concomitant]
     Active Substance: MEMANTINE HYDROCHLORIDE
     Route: 048
  9. ZYPREXA ZYDIS [Concomitant]
     Active Substance: OLANZAPINE
     Dosage: DISINTEGRATING TABLET;
     Route: 048
  10. ZOFRAN [Concomitant]
     Active Substance: ONDANSETRON HYDROCHLORIDE
     Route: 048

REACTIONS (8)
  - Nausea [Unknown]
  - Abdominal discomfort [Unknown]
  - Hyperchlorhydria [Unknown]
  - Dehydration [Unknown]
  - Dizziness [Unknown]
  - Headache [Unknown]
  - Abdominal pain [Unknown]
  - Vomiting [Unknown]

NARRATIVE: CASE EVENT DATE: 20211219
